FAERS Safety Report 6442200-5 (Version None)
Quarter: 2009Q4

REPORT INFORMATION
  Report Type: 
  Country: None (occurrence: None)
  Receive Date: 20091112
  Receipt Date: 20091104
  Transmission Date: 20100525
  Serious: Yes (Hospitalization)
  Sender: FDA-Public Use
  Company Number: TCI2009A04455

PATIENT
  Age: 56 Year
  Sex: Female

DRUGS (5)
  1. ACTOS [Suspect]
     Indication: TYPE 2 DIABETES MELLITUS
     Dosage: 15 MG (15 MG, 1 D), ORAL
     Route: 048
     Dates: start: 20080527
  2. BIGUANIDES [Concomitant]
  3. ALPHA GLUCOSIDASE INHIBITORS [Concomitant]
  4. ANTIHYPERTENSIVES [Concomitant]
  5. FIBRATES [Concomitant]

REACTIONS (1)
  - ANGINA PECTORIS [None]
